FAERS Safety Report 9267613 (Version 2)
Quarter: 2014Q2

REPORT INFORMATION
  Report Type: Spontaneous
  Country: CA (occurrence: CA)
  Receive Date: 20130502
  Receipt Date: 20140421
  Transmission Date: 20141212
  Serious: Yes (Hospitalization)
  Sender: FDA-Public Use
  Company Number: 2013SP001224

PATIENT
  Age: 61 Year
  Sex: Male

DRUGS (8)
  1. CICLESONIDE HFA [Suspect]
     Indication: ASTHMA
     Route: 055
  2. ACCOLATE [Suspect]
     Indication: ASTHMA
  3. BUDESONIDE [Suspect]
     Indication: ASTHMA
     Route: 055
  4. HUMAN IMMUNOGLOBULIN G [Suspect]
     Indication: ASTHMA
     Route: 042
  5. MOXIFLOXACIN [Suspect]
     Indication: ASTHMA
     Route: 055
  6. SALBUTAMOL [Suspect]
     Indication: ASTHMA
  7. SPIRIVA [Suspect]
     Indication: ASTHMA
  8. BUDESONIDE W/FORMOTEROL FUMARATE [Suspect]
     Indication: ASTHMA
     Route: 055

REACTIONS (2)
  - Asthma [Recovered/Resolved]
  - Drug ineffective [None]
